FAERS Safety Report 20207474 (Version 1)
Quarter: 2021Q4

REPORT INFORMATION
  Report Type: Spontaneous
  Country: US (occurrence: None)
  Receive Date: 20211219
  Receipt Date: 20211219
  Transmission Date: 20220303
  Serious: Yes (Hospitalization)
  Sender: FDA-Public Use
  Company Number: None

PATIENT
  Age: 67 Year
  Sex: Male
  Weight: 130 kg

DRUGS (1)
  1. SULFAMETHOXAZOLE\TRIMETHOPRIM [Suspect]
     Active Substance: SULFAMETHOXAZOLE\TRIMETHOPRIM
     Dosage: FREQUENCY : TWICE A DAY;?
     Route: 048
     Dates: start: 20210720, end: 20210722

REACTIONS (11)
  - Dermatitis exfoliative [None]
  - Drug eruption [None]
  - Rash maculo-papular [None]
  - Rash erythematous [None]
  - Rash [None]
  - Necrosis [None]
  - Drug reaction with eosinophilia and systemic symptoms [None]
  - Loss of personal independence in daily activities [None]
  - Gout [None]
  - Hyperkalaemia [None]
  - Haemoglobin decreased [None]

NARRATIVE: CASE EVENT DATE: 20210722
